FAERS Safety Report 5212654-0 (Version None)
Quarter: 2007Q1

REPORT INFORMATION
  Report Type: 
  Country: None (occurrence: None)
  Receive Date: 20070118
  Receipt Date: 20070110
  Transmission Date: 20070707
  Serious: Yes (Hospitalization, Other)
  Sender: FDA-Public Use
  Company Number: US-PFIZER INC-2007003013

PATIENT
  Sex: Male
  Weight: 108.9 kg

DRUGS (14)
  1. XALATAN [Suspect]
     Indication: INTRAOCULAR PRESSURE INCREASED
     Route: 047
  2. DETROL LA [Suspect]
     Indication: HYPERTONIC BLADDER
  3. INSULIN [Concomitant]
  4. AVODART [Concomitant]
  5. ATIVAN [Concomitant]
  6. NEXIUM [Concomitant]
  7. ZANTAC [Concomitant]
  8. UROXATRAL [Concomitant]
  9. POTASSIUM ACETATE [Concomitant]
  10. LASIX [Concomitant]
  11. METHADONE HCL [Concomitant]
  12. FLEXERIL [Concomitant]
  13. PLAVIX [Concomitant]
  14. ASPIRIN [Concomitant]

REACTIONS (4)
  - BLOOD CREATINE PHOSPHOKINASE INCREASED [None]
  - HYPERTONIC BLADDER [None]
  - MYALGIA [None]
  - PNEUMONIA [None]
